FAERS Safety Report 4609089-8 (Version None)
Quarter: 2005Q2

REPORT INFORMATION
  Report Type: 
  Country: None (occurrence: None)
  Receive Date: 20050228
  Receipt Date: 20041110
  Transmission Date: 20051028
  Serious: Yes (Hospitalization)
  Sender: FDA-Public Use
  Company Number: US-JNJFOC-20040701326

PATIENT
  Age: 29 Year
  Sex: Male

DRUGS (4)
  1. RISPERDAL [Suspect]
     Indication: BIPOLAR DISORDER
     Dosage: 25 MG, 1 IN 2 WEEK, INTRA-MUSCULAR
     Route: 030
     Dates: start: 20040301, end: 20040715
  2. ZOLOFT [Concomitant]
  3. CLONOPIN (CLONAZEPAM) [Concomitant]
  4. ADDERAL (OBETROL) [Concomitant]

REACTIONS (13)
  - AGGRESSION [None]
  - AGITATION [None]
  - ANXIETY [None]
  - DIZZINESS [None]
  - GYNAECOMASTIA [None]
  - HYPERHIDROSIS [None]
  - MEMORY IMPAIRMENT [None]
  - ORTHOSTATIC HYPOTENSION [None]
  - PARAESTHESIA [None]
  - SEDATION [None]
  - SOMNOLENCE [None]
  - TENSION HEADACHE [None]
  - WEIGHT INCREASED [None]
